FAERS Safety Report 19010995 (Version 1)
Quarter: 2021Q1

REPORT INFORMATION
  Report Type: Spontaneous
  Country: US (occurrence: US)
  Receive Date: 20210316
  Receipt Date: 20210316
  Transmission Date: 20210420
  Serious: No
  Sender: FDA-Public Use
  Company Number: US-ORGANON-O2103USA000191

PATIENT
  Age: 68 Year
  Sex: Male

DRUGS (1)
  1. ASMANEX [Suspect]
     Active Substance: MOMETASONE FUROATE
     Dosage: 220 MCG ONCE IN THE EVENING
     Dates: start: 2009, end: 20210221

REACTIONS (5)
  - Device malfunction [Unknown]
  - Product dose omission issue [Unknown]
  - Poor quality device used [Unknown]
  - Asthma [Recovered/Resolved]
  - Circumstance or information capable of leading to medication error [Unknown]

NARRATIVE: CASE EVENT DATE: 20210220
